FAERS Safety Report 8762090 (Version 3)
Quarter: 2013Q3

REPORT INFORMATION
  Report Type: Report from Study
  Country: JP (occurrence: JP)
  Receive Date: 20120830
  Receipt Date: 20130806
  Transmission Date: 20140515
  Serious: Yes (Hospitalization, Other)
  Sender: FDA-Public Use
  Company Number: JP-VERTEX PHARMACEUTICAL INC.-AE-2012-005588

PATIENT
  Age: 60 Year
  Sex: Male

DRUGS (11)
  1. VX-950 (TELAPREVIR) [Suspect]
     Indication: CHRONIC HEPATITIS C
     Dosage: 2250 MG, QD
     Route: 048
     Dates: start: 20120222, end: 20120224
  2. VX-950 (TELAPREVIR) [Suspect]
     Dosage: 1500 MG, QD
     Route: 048
     Dates: start: 20120225
  3. PEGINTRON [Suspect]
     Indication: CHRONIC HEPATITIS C
     Dosage: 0.75 ?G/KG, QW
     Route: 058
     Dates: start: 20120222, end: 20120807
  4. REBETOL [Suspect]
     Indication: CHRONIC HEPATITIS C
     Dosage: 600 MG, QD
     Route: 048
     Dates: start: 20120222, end: 20120301
  5. REBETOL [Suspect]
     Dosage: 400 MG, QD
     Route: 048
     Dates: start: 20120302, end: 20120411
  6. REBETOL [Suspect]
     Dosage: 200 MG, QD
     Route: 048
     Dates: start: 20120411, end: 20120425
  7. REBETOL [Suspect]
     Dosage: 200 MG, QD
     Dates: start: 20120516, end: 20120717
  8. REBETOL [Suspect]
     Dosage: 400 MG, QD
     Dates: start: 20120718, end: 20120724
  9. REBETOL [Suspect]
     Dosage: 600 MG, QD
     Dates: start: 20120725, end: 20120807
  10. BERIZYM [Concomitant]
     Dosage: 3 G, QD
     Route: 048
     Dates: start: 20120309
  11. OLMETEC [Concomitant]
     Dosage: 20 MG, QD
     Route: 048
     Dates: start: 20120222

REACTIONS (6)
  - Renal disorder [Recovered/Resolved]
  - Neutrophil count decreased [Recovered/Resolved]
  - Amylase increased [Recovered/Resolved]
  - Anaemia [Recovered/Resolved]
  - Platelet count decreased [Not Recovered/Not Resolved]
  - Hyperuricaemia [Recovered/Resolved]
